FAERS Safety Report 19929096 (Version 2)
Quarter: 2021Q4

REPORT INFORMATION
  Report Type: Spontaneous
  Country: US (occurrence: None)
  Receive Date: 20211007
  Receipt Date: 20211110
  Transmission Date: 20220303
  Serious: No
  Sender: FDA-Public Use
  Company Number: 2021A737799

PATIENT
  Age: 59 Year
  Sex: Male
  Weight: 140.6 kg

DRUGS (1)
  1. BYDUREON BCISE [Suspect]
     Active Substance: EXENATIDE
     Indication: Diabetes mellitus
     Route: 058
     Dates: start: 20210809

REACTIONS (15)
  - Fall [Unknown]
  - Memory impairment [Unknown]
  - Gait disturbance [Unknown]
  - Sciatica [Unknown]
  - Nerve injury [Unknown]
  - Back pain [Unknown]
  - Walking aid user [Unknown]
  - Illiteracy [Unknown]
  - Dizziness [Unknown]
  - Overweight [Unknown]
  - Disability [Unknown]
  - General physical health deterioration [Unknown]
  - Device use issue [Unknown]
  - Product storage error [Unknown]
  - Wrong technique in device usage process [Unknown]

NARRATIVE: CASE EVENT DATE: 20210922
